FAERS Safety Report 21874984 (Version 1)
Quarter: 2023Q1

REPORT INFORMATION
  Report Type: Spontaneous
  Country: TW (occurrence: TW)
  Receive Date: 20230117
  Receipt Date: 20230117
  Transmission Date: 20230417
  Serious: Yes (Other)
  Sender: FDA-Public Use
  Company Number: TW-009507513-2301TWN003280

PATIENT
  Age: 52 Year
  Sex: Female

DRUGS (3)
  1. PEMBROLIZUMAB [Suspect]
     Active Substance: PEMBROLIZUMAB
     Indication: Clear cell endometrial carcinoma
     Dosage: TRIWEEKLY INJECTIONS OF PEMBROLIZUMAB (TOTAL 100 MG)
     Dates: start: 201709
  2. DOXORUBICIN [Suspect]
     Active Substance: DOXORUBICIN
     Indication: Clear cell endometrial carcinoma
     Dosage: 1 MILLIGRAM/KILOGRAM
  3. CARBOPLATIN [Suspect]
     Active Substance: CARBOPLATIN
     Indication: Clear cell endometrial carcinoma
     Dosage: 10 MILLIGRAM/KILOGRAM

REACTIONS (8)
  - Neutropenia [Unknown]
  - Immune-mediated thyroiditis [Recovered/Resolved]
  - Nausea [Unknown]
  - Vomiting [Unknown]
  - Sensorimotor disorder [Unknown]
  - Dermatitis [Unknown]
  - Enteritis [Unknown]
  - Product use issue [Unknown]
